FAERS Safety Report 6330353-9 (Version None)
Quarter: 2009Q3

REPORT INFORMATION
  Report Type: 
  Country: None (occurrence: None)
  Receive Date: 20090826
  Receipt Date: 20090826
  Transmission Date: 20100115
  Serious: Yes (Other)
  Sender: FDA-Public Use
  Company Number: None

PATIENT
  Age: 29 Year
  Sex: Female
  Weight: 54.4316 kg

DRUGS (1)
  1. CIPRO [Suspect]
     Indication: URINARY TRACT INFECTION
     Dosage: 1 PILL 2X A DAY PO
     Route: 048
     Dates: start: 20090819, end: 20090820

REACTIONS (7)
  - ARTHRALGIA [None]
  - CONFUSIONAL STATE [None]
  - DIZZINESS [None]
  - FEELING ABNORMAL [None]
  - JOINT SWELLING [None]
  - MEMORY IMPAIRMENT [None]
  - OEDEMA PERIPHERAL [None]
